FAERS Safety Report 10525402 (Version 1)
Quarter: 2014Q4

REPORT INFORMATION
  Report Type: Spontaneous
  Country: US (occurrence: None)
  Receive Date: 20141015
  Receipt Date: 20141015
  Transmission Date: 20150528
  Serious: No
  Sender: FDA-Public Use
  Company Number: None

PATIENT
  Age: 74 Year
  Sex: Female
  Weight: 80.74 kg

DRUGS (1)
  1. CYMBALTA [Suspect]
     Active Substance: DULOXETINE HYDROCHLORIDE
     Indication: DEPRESSION
     Dosage: 1 DAY
     Route: 048
     Dates: start: 20120401, end: 20120515

REACTIONS (5)
  - Aggression [None]
  - Homicidal ideation [None]
  - Fall [None]
  - Dizziness [None]
  - Screaming [None]
